FAERS Safety Report 10885696 (Version 2)
Quarter: 2015Q2

REPORT INFORMATION
  Report Type: Spontaneous
  Country: DE (occurrence: DE)
  Receive Date: 20150304
  Receipt Date: 20150424
  Transmission Date: 20150821
  Serious: Yes (Life-Threatening)
  Sender: FDA-Public Use
  Company Number: DE-WATSON-2015-03712

PATIENT
  Age: 83 Year
  Sex: Male
  Weight: 70 kg

DRUGS (2)
  1. LISINOPRIL-ACTAVIS [Suspect]
     Active Substance: LISINOPRIL
     Indication: HYPERTENSION
     Dosage: 20 MG, DAILY
     Route: 048
  2. VERAPAMIL [Concomitant]
     Active Substance: VERAPAMIL HYDROCHLORIDE
     Indication: HYPERTENSION
     Dosage: 3X40 MG, UNKNOWN
     Route: 048

REACTIONS (7)
  - Suspected counterfeit product [Recovered/Resolved]
  - Epistaxis [Recovered/Resolved]
  - Therapeutic product ineffective [Recovered/Resolved]
  - Product substitution issue [Recovered/Resolved]
  - Headache [Recovered/Resolved]
  - Hypertensive crisis [Recovered/Resolved]
  - Dizziness [Recovered/Resolved]

NARRATIVE: CASE EVENT DATE: 20141018
